FAERS Safety Report 13010023 (Version 7)
Quarter: 2017Q4

REPORT INFORMATION
  Report Type: Report from Study
  Country: CA (occurrence: CA)
  Receive Date: 20161208
  Receipt Date: 20171108
  Transmission Date: 20180320
  Serious: Yes (Hospitalization, Other)
  Sender: FDA-Public Use
  Company Number: PHHY2016CA129842

PATIENT
  Age: 70 Year
  Sex: Male

DRUGS (4)
  1. VITAMIN K [Suspect]
     Active Substance: PHYTONADIONE
     Dosage: UNK
     Route: 065
     Dates: start: 20170621
  2. SANDOSTATIN LAR DEPOT [Suspect]
     Active Substance: OCTREOTIDE ACETATE
     Indication: CARCINOID SYNDROME
     Dosage: 30 MG, QMO
     Route: 030
     Dates: start: 20160816
  3. VITAMIN K [Suspect]
     Active Substance: PHYTONADIONE
     Indication: PRODUCT USED FOR UNKNOWN INDICATION
     Dosage: UNK
     Route: 065
  4. TYLENOL [Concomitant]
     Active Substance: ACETAMINOPHEN
     Indication: PRODUCT USED FOR UNKNOWN INDICATION
     Dosage: UNK
     Route: 065

REACTIONS (19)
  - Body temperature decreased [Unknown]
  - Blood pressure systolic increased [Unknown]
  - Coagulopathy [Unknown]
  - Platelet count decreased [Unknown]
  - Skin discolouration [Not Recovered/Not Resolved]
  - Tibia fracture [Unknown]
  - Haemorrhage [Unknown]
  - Pain in extremity [Unknown]
  - Fatigue [Unknown]
  - Traumatic haemorrhage [Unknown]
  - Injection site haemorrhage [Not Recovered/Not Resolved]
  - Head injury [Unknown]
  - Feeling hot [Unknown]
  - Wound [Unknown]
  - Fall [Unknown]
  - Malaise [Unknown]
  - Injection site discomfort [Unknown]
  - Foot fracture [Not Recovered/Not Resolved]
  - Contusion [Unknown]

NARRATIVE: CASE EVENT DATE: 20160916
